FAERS Safety Report 7768817-3 (Version None)
Quarter: 2011Q3

REPORT INFORMATION
  Report Type: 
  Country: None (occurrence: None)
  Receive Date: 20110920
  Receipt Date: 20110908
  Transmission Date: 20111222
  Serious: Yes (Hospitalization, Disabling, Other)
  Sender: FDA-Public Use
  Company Number: 2010MA001018

PATIENT
  Sex: Male
  Weight: 99.7913 kg

DRUGS (39)
  1. NEURONTIN [Concomitant]
  2. AMBIEN [Concomitant]
  3. PREVPAC [Concomitant]
  4. METOCLOPRAMIDE [Suspect]
     Dosage: 50 MG;
     Dates: start: 20070101, end: 20090101
  5. CLONIDINE [Concomitant]
  6. BENTYL [Concomitant]
  7. ZYPREXA [Concomitant]
  8. PRILOSEC [Concomitant]
  9. ZYLOPRIM [Concomitant]
  10. ZANTAC [Concomitant]
  11. DONNATAL [Concomitant]
  12. LORCET-HD [Concomitant]
  13. PERCOCET [Concomitant]
  14. OXYCONTIN [Concomitant]
  15. TRAZODONE HYDROCHLORIDE [Concomitant]
  16. XANAX [Concomitant]
  17. IMITREX [Concomitant]
  18. DARVOCET [Concomitant]
  19. ZOCOR [Concomitant]
  20. GEMFIBROZIL [Concomitant]
  21. FIORICET [Concomitant]
  22. MOBIC [Concomitant]
  23. ROXICODONE [Concomitant]
  24. PROPOXYPHENE HYDROCHLORIDE [Concomitant]
  25. ELAVIL [Concomitant]
  26. DIAZEPAM [Concomitant]
  27. SIMVASTATIN [Concomitant]
  28. FIORINAL [Concomitant]
  29. CARAFATE [Concomitant]
  30. HYDROCHLOROTHIAZIDE [Concomitant]
  31. BACLOFEN [Concomitant]
  32. DARVOCET [Concomitant]
  33. HYDROCODONE [Concomitant]
  34. NEXIUM [Concomitant]
  35. CELEXA [Concomitant]
  36. CATAFLAM [Concomitant]
  37. LOVAZA [Concomitant]
  38. AMOXICILLIN [Concomitant]
  39. COLCRYS [Concomitant]

REACTIONS (24)
  - MENTAL DISORDER [None]
  - ANXIETY [None]
  - ECONOMIC PROBLEM [None]
  - PERSONALITY CHANGE [None]
  - INSOMNIA [None]
  - EYE MOVEMENT DISORDER [None]
  - LACRIMATION INCREASED [None]
  - NERVOUS SYSTEM DISORDER [None]
  - POST-TRAUMATIC STRESS DISORDER [None]
  - MUSCLE SPASMS [None]
  - ACTIVITIES OF DAILY LIVING IMPAIRED [None]
  - BRUXISM [None]
  - EXCESSIVE EYE BLINKING [None]
  - DYSKINESIA [None]
  - CONTUSION [None]
  - INJURY [None]
  - QUALITY OF LIFE DECREASED [None]
  - FRACTURE DELAYED UNION [None]
  - TARDIVE DYSKINESIA [None]
  - EXTRAPYRAMIDAL DISORDER [None]
  - PAIN [None]
  - DEPRESSION [None]
  - PAIN IN EXTREMITY [None]
  - CHILLS [None]
